FAERS Safety Report 6862980-4 (Version None)
Quarter: 2010Q3

REPORT INFORMATION
  Report Type: 
  Country: None (occurrence: None)
  Receive Date: 20100721
  Receipt Date: 20100712
  Transmission Date: 20110219
  Serious: Yes (Other)
  Sender: FDA-Public Use
  Company Number: CHPA2010US11230

PATIENT
  Sex: Female

DRUGS (3)
  1. PRIVATE LABEL (NCH) [Suspect]
     Indication: SMOKING CESSATION THERAPY
     Dosage: 21 MG, QD
     Route: 062
  2. PRIVATE LABEL (NCH) [Suspect]
     Dosage: 21 MG, QD
     Route: 062
     Dates: start: 20100101, end: 20100101
  3. PRIVATE LABEL (NCH) [Suspect]
     Dosage: 14 MG, QD
     Route: 062
     Dates: start: 20100708

REACTIONS (1)
  - EMPHYSEMA [None]
